FAERS Safety Report 10195007 (Version 1)
Quarter: 2014Q2

REPORT INFORMATION
  Report Type: Spontaneous
  Country: US (occurrence: US)
  Receive Date: 20140526
  Receipt Date: 20140526
  Transmission Date: 20141212
  Serious: No
  Sender: FDA-Public Use
  Company Number: US-009507513-1405USA000086

PATIENT
  Sex: Female

DRUGS (1)
  1. ETONOGESTREL IMPLANT- UNKNOWN [Suspect]
     Indication: CONTRACEPTION
     Dosage: 68 MG ONCE EVERY 3 YEARS
     Route: 058
     Dates: start: 201104

REACTIONS (3)
  - Device dislocation [Unknown]
  - Device difficult to use [Unknown]
  - Medical device complication [Unknown]
